FAERS Safety Report 4312093-0 (Version None)
Quarter: 2004Q1

REPORT INFORMATION
  Report Type: 
  Country: None (occurrence: None)
  Receive Date: 20040303
  Receipt Date: 20040220
  Transmission Date: 20041129
  Serious: Yes (Life-Threatening)
  Sender: FDA-Public Use
  Company Number: 04P-114-0250400-00

PATIENT
  Age: 14 Year
  Sex: Male

DRUGS (13)
  1. SEVOFLURANE [Suspect]
     Indication: GENERAL ANAESTHESIA
  2. CISAPRIDE [Suspect]
     Indication: LEUKAEMIA
  3. FLUCONAZOLE [Suspect]
     Indication: GASTROINTESTINAL INFECTION
  4. FLUCONAZOLE [Suspect]
     Indication: INFECTION PROPHYLAXIS
  5. CEFLAZIDIM [Concomitant]
  6. VANCOMYCIN [Concomitant]
  7. ONDANSETRON HCL [Concomitant]
  8. LACTULOSE [Concomitant]
  9. SUFENTANIL [Concomitant]
  10. THIOPENTAL SODIUM [Concomitant]
  11. MIVACURIUM [Concomitant]
  12. OXYGEN [Concomitant]
  13. NITROUS OXIDE [Concomitant]

REACTIONS (4)
  - DRUG INTERACTION [None]
  - ELECTROCARDIOGRAM QT PROLONGED [None]
  - VENTRICULAR EXTRASYSTOLES [None]
  - VENTRICULAR TACHYCARDIA [None]
